FAERS Safety Report 11181250 (Version 1)
Quarter: 2015Q2

REPORT INFORMATION
  Report Type: Spontaneous
  Country: US (occurrence: None)
  Receive Date: 20150610
  Receipt Date: 20150610
  Transmission Date: 20150821
  Serious: No
  Sender: FDA-Public Use
  Company Number: None

PATIENT
  Age: 62 Year
  Sex: Female
  Weight: 45.36 kg

DRUGS (7)
  1. LUNESTA [Concomitant]
     Active Substance: ESZOPICLONE
  2. TURMERIC [Concomitant]
     Active Substance: TURMERIC
  3. PROBIOTICS [Concomitant]
     Active Substance: PROBIOTICS NOS
  4. GLUCOSAMINE [Concomitant]
     Active Substance: GLUCOSAMINE
  5. PRILOSEC [Concomitant]
     Active Substance: OMEPRAZOLE MAGNESIUM
  6. FORTEO [Suspect]
     Active Substance: TERIPARATIDE
     Indication: OSTEOPOROSIS POSTMENOPAUSAL
     Route: 030
  7. CYCLOBENZPRINE [Concomitant]

REACTIONS (8)
  - Abdominal distension [None]
  - Nausea [None]
  - Paraesthesia [None]
  - Weight increased [None]
  - Dizziness [None]
  - Fatigue [None]
  - Myalgia [None]
  - Pain [None]
